FAERS Safety Report 6120589-4 (Version None)
Quarter: 2009Q1

REPORT INFORMATION
  Report Type: 
  Country: None (occurrence: None)
  Receive Date: 20090312
  Receipt Date: 20090312
  Transmission Date: 20090719
  Serious: Yes (Other)
  Sender: FDA-Public Use
  Company Number: None

PATIENT
  Age: 69 Year
  Sex: Female
  Weight: 63.5036 kg

DRUGS (5)
  1. TIMOLOL MALEATE [Suspect]
     Indication: GLAUCOMA
     Dosage: 1 DROP ONCE A DAY OPHTHALMIC
     Route: 047
     Dates: start: 20080201, end: 20081201
  2. AZOPT [Suspect]
     Indication: GLAUCOMA
     Dosage: 1 DROP ONCE A DAY OPHTHALMIC
     Route: 047
     Dates: start: 20080201, end: 20081201
  3. ALPHAGAN [Suspect]
     Indication: GLAUCOMA
     Dosage: 1 DROP ONCE A DAY OPHTHALMIC
     Route: 047
     Dates: start: 20080201, end: 20081201
  4. TRUSOPT [Suspect]
     Indication: GLAUCOMA
     Dosage: 1 DROP ONCE A DAY OPHTHALMIC
     Route: 047
     Dates: start: 20080201, end: 20081201
  5. LUMIGAN [Suspect]
     Indication: GLAUCOMA
     Dosage: 1 DROP ONCE A DAY OPHTHALMIC
     Route: 047
     Dates: start: 20080201, end: 20081201

REACTIONS (2)
  - ASTHMA [None]
  - DOCUMENTED HYPERSENSITIVITY TO ADMINISTERED DRUG [None]
